FAERS Safety Report 7041666-X (Version None)
Quarter: 2010Q4

REPORT INFORMATION
  Report Type: 
  Country: None (occurrence: None)
  Receive Date: 20101013
  Receipt Date: 20101011
  Transmission Date: 20110411
  Serious: Yes (Hospitalization)
  Sender: FDA-Public Use
  Company Number: US-CEPHALON-2010004462

PATIENT
  Sex: Female

DRUGS (3)
  1. NUVIGIL [Suspect]
     Indication: NARCOLEPSY
     Route: 048
  2. NUVIGIL [Suspect]
     Route: 048
  3. NUVIGIL [Suspect]
     Route: 048

REACTIONS (1)
  - MANIA [None]
